FAERS Safety Report 18550119 (Version 3)
Quarter: 2021Q2

REPORT INFORMATION
  Report Type: Report from Study
  Country: None (occurrence: IL)
  Receive Date: 20201126
  Receipt Date: 20210616
  Transmission Date: 20210717
  Serious: Yes (Death, Life-Threatening, Hospitalization)
  Sender: FDA-Public Use
  Company Number: IL-ABBVIE-20K-082-3665697-00

PATIENT
  Age: 73 Year
  Sex: Male

DRUGS (11)
  1. JARDIANCE [Concomitant]
     Active Substance: EMPAGLIFLOZIN
     Indication: DIABETES MELLITUS
     Dosage: JARDIANCE 5/850 FOR DAY
     Dates: start: 2007, end: 20201013
  2. VENCLEXTA [Suspect]
     Active Substance: VENETOCLAX
     Route: 048
     Dates: start: 20200930, end: 20200930
  3. ALLORIL [Concomitant]
     Active Substance: ALLOPURINOL
     Indication: PROPHYLAXIS
     Dates: end: 20201012
  4. VENCLEXTA [Suspect]
     Active Substance: VENETOCLAX
     Indication: ACUTE MYELOID LEUKAEMIA
     Route: 048
     Dates: start: 20200929, end: 20200929
  5. JANUET [Concomitant]
     Active Substance: METFORMIN HYDROCHLORIDE\SITAGLIPTIN PHOSPHATE
     Indication: DIABETES MELLITUS
     Dates: start: 2007, end: 20201013
  6. VENCLEXTA [Suspect]
     Active Substance: VENETOCLAX
     Route: 048
     Dates: start: 20201001, end: 20201026
  7. CARTIA [Concomitant]
     Indication: MYOCARDIAL ISCHAEMIA
     Dates: start: 2001, end: 20201013
  8. PLAVIX [Concomitant]
     Active Substance: CLOPIDOGREL BISULFATE
     Indication: MYOCARDIAL ISCHAEMIA
     Dates: start: 2001, end: 20201013
  9. RAMIPRIL. [Concomitant]
     Active Substance: RAMIPRIL
     Indication: MYOCARDIAL ISCHAEMIA
     Dosage: 2.5 MG FOR DAY
     Dates: start: 2001, end: 20201110
  10. AZACITIDINE. [Suspect]
     Active Substance: AZACITIDINE
     Indication: ACUTE MYELOID LEUKAEMIA
     Route: 058
     Dates: start: 20200929, end: 20201007
  11. BISOPROLOL [Concomitant]
     Active Substance: BISOPROLOL
     Indication: MYOCARDIAL ISCHAEMIA
     Dosage: BISOPROLOL 2.5MG FOR DAY
     Dates: start: 2001, end: 20201110

REACTIONS (3)
  - Sepsis [Fatal]
  - Pancytopenia [Fatal]
  - Anal abscess [Recovered/Resolved]

NARRATIVE: CASE EVENT DATE: 20201012
